FAERS Safety Report 7005259-2 (Version None)
Quarter: 2010Q3

REPORT INFORMATION
  Report Type: 
  Country: None (occurrence: None)
  Receive Date: 20100921
  Receipt Date: 20100908
  Transmission Date: 20110219
  Serious: Yes (Other)
  Sender: FDA-Public Use
  Company Number: PHHY2010JP60468

PATIENT
  Age: 55 Year
  Sex: Female

DRUGS (2)
  1. CYCLOSPORINE [Suspect]
     Indication: PUSTULAR PSORIASIS
     Dosage: 400 MG, DAILY
     Route: 048
  2. ETRETINATE [Concomitant]
     Indication: PUSTULAR PSORIASIS

REACTIONS (1)
  - RENAL DISORDER [None]
